FAERS Safety Report 6562137-0 (Version None)
Quarter: 2010Q1

REPORT INFORMATION
  Report Type: 
  Country: None (occurrence: None)
  Receive Date: 20100130
  Receipt Date: 20091102
  Transmission Date: 20100710
  Serious: No
  Sender: FDA-Public Use
  Company Number: US-ABBOTT-09P-163-0603403-00

PATIENT
  Sex: Female
  Weight: 78.996 kg

DRUGS (5)
  1. HUMIRA [Suspect]
     Indication: PSORIASIS
     Dates: start: 20090101
  2. HUMIRA [Suspect]
     Indication: PSORIATIC ARTHROPATHY
  3. TOPROL-XL [Concomitant]
     Indication: CARDIAC ABLATION
  4. ASPIRIN [Concomitant]
     Indication: CARDIAC DISORDER
  5. AMBIEN [Concomitant]
     Indication: SLEEP DISORDER THERAPY

REACTIONS (3)
  - CONDITION AGGRAVATED [None]
  - INJECTION SITE PAIN [None]
  - SKIN EXFOLIATION [None]
